FAERS Safety Report 24011410 (Version 1)
Quarter: 2024Q2

REPORT INFORMATION
  Report Type: Spontaneous
  Country: US (occurrence: US)
  Receive Date: 20240625
  Receipt Date: 20240625
  Transmission Date: 20240716
  Serious: No
  Sender: FDA-Public Use
  Company Number: US-002147023-NVSC2024US122477

PATIENT

DRUGS (1)
  1. KESIMPTA [Suspect]
     Active Substance: OFATUMUMAB
     Indication: Product used for unknown indication
     Dosage: UNK (20MG/0.4ML, 1 PEN UNDER THE SKIN AT WEEK 0, 1, 2, AND THEN 1 PEN MONTHLY THEREAFTER BEGINNING O
     Route: 065

REACTIONS (4)
  - Injection site pain [Unknown]
  - Needle issue [Unknown]
  - Device leakage [Unknown]
  - Device delivery system issue [Unknown]
